FAERS Safety Report 6888757-1 (Version None)
Quarter: 2010Q3

REPORT INFORMATION
  Report Type: 
  Country: None (occurrence: None)
  Receive Date: 20100730
  Receipt Date: 20071102
  Transmission Date: 20110219
  Serious: Yes (Other)
  Sender: FDA-Public Use
  Company Number: US-PFIZER INC-2007093025

PATIENT
  Sex: Male
  Weight: 79.545 kg

DRUGS (5)
  1. LIPITOR [Suspect]
  2. WARFARIN SODIUM [Suspect]
  3. TRICOR [Concomitant]
  4. PLAVIX [Concomitant]
  5. ACETYLSALICYLIC ACID SRT [Concomitant]

REACTIONS (2)
  - ALOPECIA [None]
  - HEART RATE IRREGULAR [None]
